FAERS Safety Report 24211174 (Version 1)
Quarter: 2024Q3

REPORT INFORMATION
  Report Type: Report from Study
  Country: US (occurrence: None)
  Receive Date: 20240814
  Receipt Date: 20240814
  Transmission Date: 20241017
  Serious: Yes (Other)
  Sender: ASTRAZENECA
  Company Number: 2023A041946

PATIENT
  Age: 21371 Day
  Sex: Female

DRUGS (1)
  1. LYNPARZA [Suspect]
     Active Substance: OLAPARIB
     Indication: Ovarian cancer
     Route: 048
     Dates: start: 20230203, end: 20230209

REACTIONS (6)
  - Generalised tonic-clonic seizure [Unknown]
  - Fall [Unknown]
  - Joint injury [Unknown]
  - Face injury [Unknown]
  - Underdose [Unknown]
  - Off label use [Unknown]

NARRATIVE: CASE EVENT DATE: 20230209
